FAERS Safety Report 10894859 (Version 1)
Quarter: 2015Q1

REPORT INFORMATION
  Report Type: Spontaneous
  Country: US (occurrence: US)
  Receive Date: 20150306
  Receipt Date: 20150306
  Transmission Date: 20150721
  Serious: No
  Sender: FDA-Public Use
  Company Number: US-GLAXOSMITHKLINE-US2015018647

PATIENT
  Age: 46 Year
  Sex: Female

DRUGS (3)
  1. VENTOLIN HFA [Suspect]
     Active Substance: ALBUTEROL SULFATE
     Indication: DYSPNOEA
  2. VENTOLIN HFA [Suspect]
     Active Substance: ALBUTEROL SULFATE
     Indication: DYSPNOEA
     Dosage: 1 PUFF(S), PRN
     Route: 055
     Dates: start: 2014
  3. ADVAIR DISKUS [Suspect]
     Active Substance: FLUTICASONE PROPIONATE\SALMETEROL XINAFOATE
     Dosage: 1 PUFF(S), QD
     Route: 055
     Dates: start: 2014

REACTIONS (8)
  - Feeling abnormal [Not Recovered/Not Resolved]
  - Dyspnoea exertional [Unknown]
  - Intentional product use issue [Not Recovered/Not Resolved]
  - Dyspnoea [Unknown]
  - Vitamin D deficiency [Unknown]
  - Thinking abnormal [Unknown]
  - Panic reaction [Unknown]
  - Chest discomfort [Not Recovered/Not Resolved]

NARRATIVE: CASE EVENT DATE: 20150129
